FAERS Safety Report 18990853 (Version 3)
Quarter: 2021Q2

REPORT INFORMATION
  Report Type: Spontaneous
  Country: FR (occurrence: FR)
  Receive Date: 20210310
  Receipt Date: 20210513
  Transmission Date: 20210717
  Serious: Yes (Death, Hospitalization, Other)
  Sender: FDA-Public Use
  Company Number: FR-AMGEN-FRASP2021034130

PATIENT
  Age: 74 Year
  Sex: Female

DRUGS (6)
  1. CARBOPLATIN. [Concomitant]
     Active Substance: CARBOPLATIN
     Indication: NON-SMALL CELL LUNG CANCER
     Dosage: 420 MILLIGRAM, 3 CYCLES
     Route: 042
     Dates: start: 20200713, end: 20200825
  2. ATEZOLIZUMAB. [Suspect]
     Active Substance: ATEZOLIZUMAB
     Indication: NON-SMALL CELL LUNG CANCER
     Dosage: 1200 MILLIGRAM, 7 CYCLES
     Route: 042
     Dates: start: 20200713
  3. CARBOPLATIN. [Concomitant]
     Active Substance: CARBOPLATIN
     Dosage: 410 MILLIGRAM, QD 1 CYCLES
     Route: 042
     Dates: start: 20200916, end: 20200916
  4. PEMETREXED. [Concomitant]
     Active Substance: PEMETREXED
     Indication: NON-SMALL CELL LUNG CANCER
     Dosage: 5 CYCLES
     Route: 042
     Dates: start: 20200713, end: 20201015
  5. PEMETREXED. [Concomitant]
     Active Substance: PEMETREXED
     Dosage: 525 MILLIGRAM, CYCLE 6 TO 8 (2 CYCLES)
     Route: 042
     Dates: start: 20201105, end: 20201126
  6. BEVACIZUMAB. [Suspect]
     Active Substance: BEVACIZUMAB
     Indication: NON-SMALL CELL LUNG CANCER
     Dosage: 15 MILLIGRAM/KILOGRAM 7 CYCLE
     Route: 042
     Dates: start: 20200713

REACTIONS (4)
  - COVID-19 [Not Recovered/Not Resolved]
  - Disease progression [Fatal]
  - Ischaemic stroke [Not Recovered/Not Resolved]
  - Hypertension [Recovering/Resolving]

NARRATIVE: CASE EVENT DATE: 20201214
